FAERS Safety Report 9696883 (Version 1)
Quarter: 2013Q4

REPORT INFORMATION
  Report Type: Spontaneous
  Country: US (occurrence: US)
  Receive Date: 20131119
  Receipt Date: 20131119
  Transmission Date: 20140711
  Serious: No
  Sender: FDA-Public Use
  Company Number: US-GILEAD-2007-0013952

PATIENT
  Age: 60 Year
  Sex: Female
  Weight: 75.75 kg

DRUGS (8)
  1. LETAIRIS [Suspect]
     Indication: PULMONARY ARTERIAL HYPERTENSION
     Route: 048
     Dates: start: 20070920
  2. FOSAMAX [Concomitant]
     Route: 048
  3. INDOCIN SR [Concomitant]
     Route: 048
  4. PROTONIX [Concomitant]
     Route: 048
  5. LISINOPRIL [Concomitant]
     Route: 048
  6. AMBIEN [Concomitant]
     Route: 048
  7. IMITREX [Concomitant]
     Route: 048
  8. ALEVE [Concomitant]
     Route: 048

REACTIONS (1)
  - Nasal congestion [Not Recovered/Not Resolved]
